FAERS Safety Report 10080216 (Version 1)
Quarter: 2014Q2

REPORT INFORMATION
  Report Type: Spontaneous
  Country: GB (occurrence: GB)
  Receive Date: 20140415
  Receipt Date: 20140415
  Transmission Date: 20141212
  Serious: Yes (Other)
  Sender: FDA-Public Use
  Company Number: PHHY2014GB042540

PATIENT
  Age: 76 Year
  Sex: Female

DRUGS (8)
  1. MEROPENEM [Suspect]
     Indication: PATHOGEN RESISTANCE
     Dosage: 1 G, QD
     Route: 042
     Dates: start: 20140117, end: 20140217
  2. ERTAPENEM [Suspect]
     Indication: PATHOGEN RESISTANCE
     Dosage: 1 G, QD
     Route: 042
     Dates: start: 20140217, end: 20140320
  3. CO-AMOXICLAV [Concomitant]
  4. FERROUS FUMARATE [Concomitant]
  5. FOLIC ACID [Concomitant]
  6. THIAMINE [Concomitant]
  7. TIGECYCLINE [Concomitant]
  8. TRIMETHOPRIM [Concomitant]

REACTIONS (2)
  - Neutropenia [Recovering/Resolving]
  - Thrombocytopenia [Not Recovered/Not Resolved]
